FAERS Safety Report 24120171 (Version 2)
Quarter: 2024Q3

REPORT INFORMATION
  Report Type: Spontaneous
  Country: CL (occurrence: CL)
  Receive Date: 20240722
  Receipt Date: 20240813
  Transmission Date: 20241016
  Serious: Yes (Other)
  Sender: PFIZER
  Company Number: CL-PFIZER INC-PV202400084768

PATIENT
  Age: 51 Year
  Sex: Female

DRUGS (1)
  1. IBRANCE [Suspect]
     Active Substance: PALBOCICLIB
     Indication: Breast cancer
     Dosage: UNK
     Dates: start: 202306, end: 20240723

REACTIONS (5)
  - Second primary malignancy [Unknown]
  - Hepatic neoplasm [Unknown]
  - Acne [Unknown]
  - Neoplasm progression [Unknown]
  - Spinal pain [Unknown]

NARRATIVE: CASE EVENT DATE: 20240805
